FAERS Safety Report 7248572-6 (Version None)
Quarter: 2011Q1

REPORT INFORMATION
  Report Type: 
  Country: None (occurrence: None)
  Receive Date: 20110128
  Receipt Date: 20101209
  Transmission Date: 20110831
  Serious: Yes (Other)
  Sender: FDA-Public Use
  Company Number: US-BAYER-2010-004101

PATIENT
  Sex: Male
  Weight: 118 kg

DRUGS (9)
  1. PAXIL [Concomitant]
  2. DOXYCYCLINE [Concomitant]
  3. LASIX [Concomitant]
  4. ALEVE (CAPLET) [Suspect]
     Indication: CONTUSION
     Dosage: 220 MG, TID
     Route: 048
     Dates: start: 20101206, end: 20101206
  5. ALEVE (CAPLET) [Suspect]
     Indication: FALL
     Dosage: 440 MG, ONCE
     Route: 048
     Dates: start: 20100401, end: 20100401
  6. METFORMIN [Concomitant]
  7. ALEVE (CAPLET) [Suspect]
     Indication: ARTHRALGIA
  8. K-DUR [Concomitant]
  9. DIOVAN [Concomitant]

REACTIONS (2)
  - HAEMORRHAGE URINARY TRACT [None]
  - DYSURIA [None]
